FAERS Safety Report 8426038-5 (Version None)
Quarter: 2012Q2

REPORT INFORMATION
  Report Type: 
  Country: None (occurrence: None)
  Receive Date: 20120611
  Receipt Date: 20120530
  Transmission Date: 20120825
  Serious: Yes (Other)
  Sender: FDA-Public Use
  Company Number: US-JNJFOC-20120410746

PATIENT
  Sex: Female

DRUGS (25)
  1. VALIUM [Concomitant]
     Route: 065
  2. ARAVA [Concomitant]
     Route: 065
  3. ROPINIROLE HYDROCHLORIDE [Concomitant]
     Route: 065
  4. REMICADE [Suspect]
     Indication: PSORIATIC ARTHROPATHY
     Dosage: STARTED AROUND 8-9 YEARS.
     Route: 042
  5. VITAMIN B COMPLEX W/ C [Concomitant]
     Route: 065
  6. FOLIC ACID [Concomitant]
     Route: 065
  7. SPIRONOLACTONE [Concomitant]
     Route: 065
  8. VITAMINS NOS [Concomitant]
     Route: 065
  9. TRAZODONE HCL [Concomitant]
     Route: 065
  10. JANUVIA [Concomitant]
     Route: 065
  11. REMICADE [Suspect]
     Route: 042
     Dates: start: 20120524
  12. TOPROL-XL [Concomitant]
     Route: 065
  13. BUDESONIDE [Concomitant]
     Dosage: AT MORNING
     Route: 065
  14. CYANOCOBALAMIN [Concomitant]
     Route: 065
  15. LANTUS [Concomitant]
     Dosage: 15 UNITS
     Route: 065
  16. ACETAMINOPHEN [Concomitant]
     Route: 065
  17. PREDNISONE TAB [Concomitant]
     Route: 065
  18. PRILOSEC [Concomitant]
     Route: 065
  19. STARLIX [Concomitant]
     Route: 065
  20. HYDROCODONE BITARTRATE + ACETAMINOPHEN [Concomitant]
     Dosage: 5-500 MG PRN
     Route: 065
  21. GABAPENTIN [Concomitant]
     Route: 065
  22. FOLIC ACID [Concomitant]
     Route: 065
  23. BENICAR HCT [Concomitant]
     Dosage: 40/25 MG
     Route: 065
  24. PLAVIX [Concomitant]
     Route: 065
  25. WELCHOL [Concomitant]
     Route: 065

REACTIONS (8)
  - LIVER FUNCTION TEST ABNORMAL [None]
  - WHITE BLOOD CELL COUNT INCREASED [None]
  - WEIGHT DECREASED [None]
  - DEHYDRATION [None]
  - LIPASE INCREASED [None]
  - SPINAL OPERATION [None]
  - BLOOD GLUCOSE INCREASED [None]
  - DIARRHOEA [None]
